FAERS Safety Report 8120959-9 (Version None)
Quarter: 2012Q1

REPORT INFORMATION
  Report Type: 
  Country: None (occurrence: None)
  Receive Date: 20120208
  Receipt Date: 20120202
  Transmission Date: 20120608
  Serious: Yes (Life-Threatening, Hospitalization)
  Sender: FDA-Public Use
  Company Number: IL-US-EMD SERONO, INC.-7110808

PATIENT
  Age: 29 Year
  Sex: Female

DRUGS (2)
  1. CHORIONIC GONADOTROPIN [Suspect]
     Indication: INFERTILITY
     Route: 058
  2. PUREGON [Suspect]
     Indication: INFERTILITY

REACTIONS (3)
  - ACUTE DISSEMINATED ENCEPHALOMYELITIS [None]
  - PLEURAL EFFUSION [None]
  - PELVIC FLUID COLLECTION [None]
